FAERS Safety Report 6989893-1 (Version None)
Quarter: 2010Q3

REPORT INFORMATION
  Report Type: 
  Country: None (occurrence: None)
  Receive Date: 20100916
  Receipt Date: 20100309
  Transmission Date: 20110219
  Serious: Yes (Other)
  Sender: FDA-Public Use
  Company Number: DE-PFIZER INC-2010033375

PATIENT
  Sex: Female

DRUGS (7)
  1. PREGABALIN [Suspect]
     Dosage: UNK,
  2. PANTOPRAZOLE SODIUM [Suspect]
     Dosage: 1 X 10 TABLETS OF 40 MG EACH
     Route: 048
  3. ACETYLSALICYLIC ACID SRT [Suspect]
  4. PARACETAMOL [Suspect]
     Dosage: UNK, ONCE
  5. CAFFEINE [Suspect]
     Dosage: UNK,
  6. PIPAMPERONE [Suspect]
     Dosage: UNK,
  7. QUETIAPINE [Suspect]
     Dosage: UNK

REACTIONS (4)
  - BODY TEMPERATURE DECREASED [None]
  - CONFUSIONAL STATE [None]
  - SOMNOLENCE [None]
  - SUICIDE ATTEMPT [None]
